FAERS Safety Report 25420875 (Version 1)
Quarter: 2025Q2

REPORT INFORMATION
  Report Type: Spontaneous
  Country: RO (occurrence: RO)
  Receive Date: 20250611
  Receipt Date: 20250611
  Transmission Date: 20250717
  Serious: Yes (Other)
  Sender: ROCHE
  Company Number: RO-ROCHE-10000302830

PATIENT
  Age: 57 Year
  Sex: Male

DRUGS (2)
  1. OCREVUS [Suspect]
     Active Substance: OCRELIZUMAB
     Indication: Product used for unknown indication
     Route: 065
     Dates: start: 201908, end: 201909
  2. OCREVUS [Suspect]
     Active Substance: OCRELIZUMAB
     Route: 065
     Dates: start: 202002

REACTIONS (11)
  - Trigeminal neuralgia [Unknown]
  - Coronary artery bypass [Unknown]
  - Glaucoma [Unknown]
  - Pupillary reflex impaired [Unknown]
  - Visual acuity reduced [Unknown]
  - Nystagmus [Unknown]
  - Dysphagia [Unknown]
  - Dysmetria [Unknown]
  - Hypoaesthesia [Unknown]
  - Urinary retention [Unknown]
  - Blindness unilateral [Unknown]

NARRATIVE: CASE EVENT DATE: 20230401
